FAERS Safety Report 14576482 (Version 2)
Quarter: 2018Q2

REPORT INFORMATION
  Report Type: Spontaneous
  Country: US (occurrence: US)
  Receive Date: 20180227
  Receipt Date: 20180402
  Transmission Date: 20180711
  Serious: No
  Sender: FDA-Public Use
  Company Number: US-PFIZER INC-2018080837

PATIENT
  Age: 86 Year
  Sex: Female
  Weight: 54.43 kg

DRUGS (4)
  1. OXYCODONE [Concomitant]
     Active Substance: OXYCODONE
  2. LYRICA [Suspect]
     Active Substance: PREGABALIN
     Indication: NEURALGIA
     Dosage: 25MG CAPSULE TWO A DAY
  3. LYRICA [Suspect]
     Active Substance: PREGABALIN
     Dosage: 25 MG, 2X/DAY
  4. LYRICA [Suspect]
     Active Substance: PREGABALIN
     Dosage: 3 DF, DAILY

REACTIONS (2)
  - Dizziness [Recovered/Resolved]
  - Vision blurred [Unknown]
